FAERS Safety Report 10607461 (Version 1)
Quarter: 2014Q4

REPORT INFORMATION
  Report Type: Spontaneous
  Country: US (occurrence: None)
  Receive Date: 20141124
  Receipt Date: 20141124
  Transmission Date: 20150529
  Serious: Yes (Hospitalization)
  Sender: FDA-Public Use
  Company Number: None

PATIENT
  Age: 82 Year
  Sex: Male
  Weight: 70 kg

DRUGS (10)
  1. ZOCOR [Concomitant]
     Active Substance: SIMVASTATIN
  2. OCULAR LUBE [Concomitant]
  3. DONEPEZIL [Concomitant]
     Active Substance: DONEPEZIL
  4. LEVOTHYROXINE [Concomitant]
     Active Substance: LEVOTHYROXINE
  5. ASA [Suspect]
     Active Substance: ASPIRIN
     Indication: PERIPHERAL VASCULAR DISORDER
     Dosage: CHRONIC
     Route: 048
  6. CENTRUM SILVER [Concomitant]
     Active Substance: VITAMINS
  7. DILTIAZEM XE [Concomitant]
  8. VITAMIN D [Concomitant]
     Active Substance: CHOLECALCIFEROL
  9. REFRESH [Concomitant]
     Active Substance: UNSPECIFIED INGREDIENT
  10. TRICOR [Concomitant]
     Active Substance: FENOFIBRATE

REACTIONS (6)
  - Fall [None]
  - Subdural haematoma [None]
  - Brain contusion [None]
  - Acute kidney injury [None]
  - Syncope [None]
  - Skull fracture [None]

NARRATIVE: CASE EVENT DATE: 20140501
